FAERS Safety Report 21715971 (Version 3)
Quarter: 2022Q4

REPORT INFORMATION
  Report Type: Report from Study
  Country: PT (occurrence: PT)
  Receive Date: 20221212
  Receipt Date: 20221220
  Transmission Date: 20230113
  Serious: Yes (Other)
  Sender: FDA-Public Use
  Company Number: PT-ABBVIE-4155015

PATIENT
  Age: 67 Year
  Sex: Male

DRUGS (14)
  1. CARBIDOPA\LEVODOPA [Suspect]
     Active Substance: CARBIDOPA\LEVODOPA
     Indication: Parkinson^s disease
     Dosage: 20 MG + 5 MG?MORN:15CC;MAINT:5.2CC/H;EXTRA:2CC
     Route: 050
     Dates: start: 2022, end: 2022
  2. CARBIDOPA\LEVODOPA [Suspect]
     Active Substance: CARBIDOPA\LEVODOPA
     Dosage: 20 MG + 5 MG?MORN:10CC;MAINT:1.5CC/H;EXTRA:1CC
     Route: 050
     Dates: start: 20211014, end: 2022
  3. CARBIDOPA\LEVODOPA [Suspect]
     Active Substance: CARBIDOPA\LEVODOPA
     Dosage: 20 MG + 5 MG?MORN:15CC;MAINT:5.2CC/H;EXTRA:2.5CC
     Route: 050
     Dates: start: 20221115, end: 20221207
  4. CARBIDOPA\LEVODOPA [Suspect]
     Active Substance: CARBIDOPA\LEVODOPA
     Dosage: 20 MG + 5 MG ?MORN:15CC;MAINT:5CC/H;EXTRA:2CC
     Route: 050
     Dates: start: 2022, end: 20221115
  5. CARBIDOPA\LEVODOPA [Suspect]
     Active Substance: CARBIDOPA\LEVODOPA
     Dosage: 20 MG + 5 MG
     Route: 050
     Dates: start: 20221207
  6. Idon (Domperidone) [Concomitant]
     Indication: Product used for unknown indication
     Dosage: TIME INTERVAL: 0.33333333 DAYS: 3 TABLET
     Dates: start: 202110, end: 2022
  7. NEXIUM [Concomitant]
     Active Substance: ESOMEPRAZOLE MAGNESIUM
     Indication: Product used for unknown indication
     Dosage: 1 TABLET?AT FASTING, FORM STRENGTH 40 MG
     Dates: start: 202110
  8. Betolvex (Cyanocobalamin) [Concomitant]
     Indication: Product used for unknown indication
     Dosage: 1 MILLIGRAM-STRENGTH?AT LUNCH
     Dates: start: 202110
  9. Trazone (Trazodone hydrochloride) [Concomitant]
     Indication: Product used for unknown indication
     Dosage: 0.5 TABLET?AT BEDTIME
     Dates: start: 202110, end: 2022
  10. Acido folico (Folic acid) [Concomitant]
     Indication: Product used for unknown indication
     Dosage: 1 TABLET?AT LUNCH
     Dates: start: 202110
  11. DIAZEPAM [Concomitant]
     Active Substance: DIAZEPAM
     Indication: Product used for unknown indication
     Dosage: 10 MILLIGRAM?AT BEDTIME?STARTED BEFORE DUODOPA, STRENGTH 10 MG
     Dates: end: 2022
  12. Sinemet CR (carbidopa/levodopa) [Concomitant]
     Indication: Product used for unknown indication
     Dosage: 2 TABLET?AT BEDTIME ?STARTED BEFORE DUODOPA
  13. RISPERDAL [Concomitant]
     Active Substance: RISPERIDONE
     Indication: Psychotic disorder
     Dosage: IN SOS
     Dates: start: 20220228, end: 2022
  14. QUETIAPINE [Concomitant]
     Active Substance: QUETIAPINE
     Indication: Psychotic disorder
     Dates: start: 20220302

REACTIONS (10)
  - Wound [Recovered/Resolved]
  - Fall [Not Recovered/Not Resolved]
  - Hypertension [Recovered/Resolved]
  - Fall [Not Recovered/Not Resolved]
  - Gait disturbance [Recovering/Resolving]
  - Movement disorder [Recovering/Resolving]
  - Freezing phenomenon [Recovering/Resolving]
  - Parkinsonian gait [Recovering/Resolving]
  - Reduced facial expression [Recovering/Resolving]
  - Somnolence [Recovered/Resolved]

NARRATIVE: CASE EVENT DATE: 20220901
